FAERS Safety Report 8739507 (Version 3)
Quarter: 2013Q1

REPORT INFORMATION
  Report Type: Spontaneous
  Country: US (occurrence: US)
  Receive Date: 20120823
  Receipt Date: 20130201
  Transmission Date: 20140127
  Serious: Yes (Hospitalization, Other)
  Sender: FDA-Public Use
  Company Number: US-PFIZER INC-2012205274

PATIENT
  Age: 55 Year
  Sex: Female
  Weight: 55.33 kg

DRUGS (4)
  1. CELEBREX [Suspect]
     Indication: OSTEOARTHRITIS
     Dosage: 200 MG, 1X/DAY
     Route: 048
     Dates: start: 2003
  2. METHOTREXATE [Concomitant]
     Dosage: UNK
     Dates: end: 201207
  3. ZOLOFT [Concomitant]
     Dosage: UNK
  4. SOMA [Concomitant]
     Dosage: UNK, 2X/DAY PRN
     Route: 048

REACTIONS (27)
  - Spinal cord injury cervical [Recovering/Resolving]
  - Rheumatoid arthritis [Recovering/Resolving]
  - Dislocation of vertebra [Unknown]
  - Weight decreased [Unknown]
  - Local swelling [Unknown]
  - Local swelling [Unknown]
  - Joint swelling [Unknown]
  - Arthropathy [Unknown]
  - Spinal osteoarthritis [Unknown]
  - Neck pain [Unknown]
  - Cervical radiculopathy [Unknown]
  - Neck pain [Unknown]
  - Arthritis [Unknown]
  - Pain in extremity [Unknown]
  - Back pain [Unknown]
  - Muscle spasms [Unknown]
  - Musculoskeletal stiffness [Unknown]
  - Paraesthesia [Unknown]
  - Gait disturbance [Recovering/Resolving]
  - Pain [Recovering/Resolving]
  - Insomnia [Recovering/Resolving]
  - Asthenia [Unknown]
  - Hypoaesthesia [Unknown]
  - Headache [Unknown]
  - Dry skin [Unknown]
  - Impaired work ability [Unknown]
  - Surgery [Unknown]
